FAERS Safety Report 14315144 (Version 1)
Quarter: 2017Q4

REPORT INFORMATION
  Report Type: Spontaneous
  Country: NL (occurrence: NL)
  Receive Date: 20171221
  Receipt Date: 20171221
  Transmission Date: 20180321
  Serious: Yes (Other)
  Sender: FDA-Public Use
  Company Number: NL-ELITE LABORATORIES INC.-2017ELT00017

PATIENT
  Age: 43 Year
  Sex: Female

DRUGS (1)
  1. NALTREXONE [Suspect]
     Active Substance: NALTREXONE
     Route: 065

REACTIONS (1)
  - Psychotic disorder [Recovered/Resolved]
